FAERS Safety Report 19094331 (Version 1)
Quarter: 2021Q2

REPORT INFORMATION
  Report Type: Spontaneous
  Country: JP (occurrence: JP)
  Receive Date: 20210406
  Receipt Date: 20210406
  Transmission Date: 20210717
  Serious: Yes (Life-Threatening, Hospitalization, Other)
  Sender: FDA-Public Use
  Company Number: JP-SUN PHARMACEUTICAL INDUSTRIES LTD-2021R1-289406

PATIENT
  Age: 19 Year
  Sex: Male

DRUGS (1)
  1. AMITRIPTYLINE [Suspect]
     Active Substance: AMITRIPTYLINE
     Indication: PRODUCT USED FOR UNKNOWN INDICATION
     Dosage: UNK
     Route: 065

REACTIONS (10)
  - Status epilepticus [Recovering/Resolving]
  - Coma [Recovering/Resolving]
  - Mental status changes [Recovering/Resolving]
  - Electrocardiogram QRS complex prolonged [Recovering/Resolving]
  - Blood lactate dehydrogenase abnormal [Recovering/Resolving]
  - Overdose [Recovering/Resolving]
  - Blood lactic acid increased [Recovering/Resolving]
  - Electrocardiogram QT prolonged [Recovering/Resolving]
  - Cardiac arrest [Recovering/Resolving]
  - Ventricular tachycardia [Recovering/Resolving]
